FAERS Safety Report 15983637 (Version 1)
Quarter: 2019Q1

REPORT INFORMATION
  Report Type: Spontaneous
  Country: JP (occurrence: JP)
  Receive Date: 20190220
  Receipt Date: 20190220
  Transmission Date: 20190418
  Serious: Yes (Hospitalization, Other)
  Sender: FDA-Public Use
  Company Number: JP-SA-2019SA036507

PATIENT
  Age: 56 Year
  Sex: Male

DRUGS (6)
  1. OXALIPLATIN. [Suspect]
     Active Substance: OXALIPLATIN
     Indication: METASTASES TO PERITONEUM
     Dosage: 130 MG/M2
     Route: 042
  2. OXALIPLATIN. [Suspect]
     Active Substance: OXALIPLATIN
     Indication: COLON CANCER STAGE II
  3. BEVACIZUMAB. [Suspect]
     Active Substance: BEVACIZUMAB
     Indication: METASTASES TO PERITONEUM
  4. BEVACIZUMAB. [Suspect]
     Active Substance: BEVACIZUMAB
     Indication: COLON CANCER STAGE II
     Dosage: 7.5 MG/KG, UNK
     Route: 042
  5. TS-1 [Suspect]
     Active Substance: GIMERACIL\OTERACIL\TEGAFUR
     Indication: METASTASES TO PERITONEUM
     Dosage: UNK
     Route: 048
  6. TS-1 [Suspect]
     Active Substance: GIMERACIL\OTERACIL\TEGAFUR
     Indication: COLON CANCER STAGE II
     Dosage: 120 MG/DAY
     Route: 048

REACTIONS (8)
  - Decreased appetite [Unknown]
  - Diarrhoea [Unknown]
  - Lacrimal disorder [Recovered/Resolved]
  - Corneal disorder [Recovered/Resolved]
  - Carcinoembryonic antigen decreased [Recovered/Resolved]
  - Neuropathy peripheral [Unknown]
  - Hyperbilirubinaemia [Recovered/Resolved]
  - Thrombocytopenia [Recovered/Resolved]
